FAERS Safety Report 18589931 (Version 1)
Quarter: 2020Q4

REPORT INFORMATION
  Report Type: Spontaneous
  Country: US (occurrence: US)
  Receive Date: 20201207
  Receipt Date: 20201207
  Transmission Date: 20210114
  Serious: No
  Sender: FDA-Public Use
  Company Number: None

PATIENT
  Age: 15 Year
  Sex: Female
  Weight: 50.6 kg

DRUGS (1)
  1. COMPAZINE [Suspect]
     Active Substance: PROCHLORPERAZINE MALEATE
     Route: 042

REACTIONS (4)
  - Feeling abnormal [None]
  - Dystonia [None]
  - Gaze palsy [None]
  - Feeling hot [None]

NARRATIVE: CASE EVENT DATE: 20201201
